FAERS Safety Report 19770109 (Version 2)
Quarter: 2021Q3

REPORT INFORMATION
  Report Type: Spontaneous
  Country: FR (occurrence: FR)
  Receive Date: 20210831
  Receipt Date: 20210907
  Transmission Date: 20211014
  Serious: Yes (Life-Threatening, Hospitalization)
  Sender: FDA-Public Use
  Company Number: FR-B.I. PHARMACEUTICALS,INC./RIDGEFIELD-2021-BI-124426

PATIENT
  Age: 73 Year
  Sex: Male
  Weight: 100 kg

DRUGS (2)
  1. DEPAKINE [VALPROIC ACID] [Concomitant]
     Active Substance: VALPROIC ACID
     Indication: EPILEPSY
  2. OFEV [Suspect]
     Active Substance: NINTEDANIB
     Indication: IDIOPATHIC PULMONARY FIBROSIS

REACTIONS (5)
  - Chest pain [Unknown]
  - Weight decreased [Unknown]
  - General physical health deterioration [Unknown]
  - Dysphagia [Not Recovered/Not Resolved]
  - Malnutrition [Unknown]
